FAERS Safety Report 16001272 (Version 1)
Quarter: 2019Q1

REPORT INFORMATION
  Report Type: Spontaneous
  Country: GB (occurrence: GB)
  Receive Date: 20190225
  Receipt Date: 20190225
  Transmission Date: 20190418
  Serious: Yes (Other)
  Sender: FDA-Public Use
  Company Number: GB-PFIZER INC-2019074820

PATIENT
  Sex: Male

DRUGS (1)
  1. VANCOMYCIN HCL [Suspect]
     Active Substance: VANCOMYCIN HYDROCHLORIDE
     Dosage: 6.1 ML, (CONCENTRATION OF 500MG IN 20ML)
     Route: 043
     Dates: start: 20180924

REACTIONS (3)
  - Product preparation error [Unknown]
  - Accidental overdose [Unknown]
  - Erythema [Unknown]

NARRATIVE: CASE EVENT DATE: 20180924
